FAERS Safety Report 17122322 (Version 3)
Quarter: 2021Q4

REPORT INFORMATION
  Report Type: Report from Study
  Country: JP (occurrence: JP)
  Receive Date: 20191206
  Receipt Date: 20211025
  Transmission Date: 20220303
  Serious: Yes (Death)
  Sender: FDA-Public Use
  Company Number: JP-PFIZER INC-2019522449

PATIENT
  Age: 52 Year
  Sex: Female
  Weight: 46.4 kg

DRUGS (1)
  1. BESPONSA [Suspect]
     Active Substance: INOTUZUMAB OZOGAMICIN
     Indication: Acute lymphocytic leukaemia recurrent
     Dosage: 0.8 MG/M2 (1 MG/BODY), 1X/DAY
     Route: 041
     Dates: start: 20191126, end: 20191129

REACTIONS (3)
  - Neoplasm progression [Fatal]
  - Cerebral haemorrhage [Not Recovered/Not Resolved]
  - Gastrointestinal haemorrhage [Not Recovered/Not Resolved]

NARRATIVE: CASE EVENT DATE: 20191201
